FAERS Safety Report 5239149-2 (Version None)
Quarter: 2007Q1

REPORT INFORMATION
  Report Type: 
  Country: None (occurrence: None)
  Receive Date: 20061208
  Receipt Date: 20050524
  Transmission Date: 20070707
  Serious: Yes (Other)
  Sender: FDA-Public Use
  Company Number: 2005UW08031

PATIENT
  Age: 75 Year
  Sex: Female
  Weight: 45.359 kg

DRUGS (5)
  1. CRESTOR [Suspect]
     Indication: BLOOD CHOLESTEROL INCREASED
     Dosage: 20 MG PO
     Route: 048
  2. CRESTOR [Suspect]
     Indication: BLOOD CHOLESTEROL INCREASED
     Dosage: 10 MG PO
     Route: 048
  3. SLEEPING PILL [Concomitant]
  4. BLOOD THINNER [Concomitant]
  5. FOSAMAX [Concomitant]

REACTIONS (2)
  - PAIN IN EXTREMITY [None]
  - WEIGHT DECREASED [None]
